FAERS Safety Report 9380098 (Version 3)
Quarter: 2013Q3

REPORT INFORMATION
  Report Type: Report from Study
  Country: KR (occurrence: KR)
  Receive Date: 20130702
  Receipt Date: 20130911
  Transmission Date: 20140515
  Serious: Yes (Hospitalization)
  Sender: FDA-Public Use
  Company Number: KR-SANOFI-AVENTIS-2013SA064621

PATIENT
  Age: 70 Year
  Sex: Female
  Weight: 61 kg

DRUGS (4)
  1. LANTUS [Suspect]
     Indication: DIABETES MELLITUS
     Dosage: STRENGTH: 100 IU/ML DOSE:46 UNIT(S)
     Route: 058
     Dates: start: 2009
  2. LANTUS [Suspect]
     Indication: DIABETES MELLITUS
     Dosage: STRENGTH: 100 IU/ML DOSE:35 UNIT(S)
     Route: 058
  3. LANTUS [Suspect]
     Indication: DIABETES MELLITUS
     Dosage: STRENGTH: 100 IU/ML DOSE:36 UNIT(S)
     Route: 058
     Dates: end: 20130622
  4. LANTUS [Suspect]
     Indication: DIABETES MELLITUS
     Dosage: STRENGTH: 100 IU/ML DOSE:34 UNIT(S)
     Route: 058

REACTIONS (5)
  - Cerebral infarction [Recovering/Resolving]
  - Gait disturbance [Recovering/Resolving]
  - Vision blurred [Recovering/Resolving]
  - Hemiplegia [Recovering/Resolving]
  - Hyperglycaemia [Recovering/Resolving]
